FAERS Safety Report 10263381 (Version 1)
Quarter: 2014Q2

REPORT INFORMATION
  Report Type: Spontaneous
  Country: US (occurrence: US)
  Receive Date: 20140626
  Receipt Date: 20140626
  Transmission Date: 20141212
  Serious: No
  Sender: FDA-Public Use
  Company Number: US-009507513-1406USA009588

PATIENT
  Sex: Female

DRUGS (1)
  1. PROVENTIL [Suspect]
     Dosage: 1 PUFF EVERY 4-6 HOURS
     Route: 055
     Dates: start: 1994

REACTIONS (3)
  - Drug dose omission [Unknown]
  - Product quality issue [Unknown]
  - No adverse event [Unknown]
